FAERS Safety Report 7574974-4 (Version None)
Quarter: 2011Q2

REPORT INFORMATION
  Report Type: 
  Country: None (occurrence: None)
  Receive Date: 20110627
  Receipt Date: 20110614
  Transmission Date: 20111010
  Serious: Yes (Hospitalization)
  Sender: FDA-Public Use
  Company Number: DK-JNJFOC-20110608805

PATIENT
  Sex: Female
  Weight: 70 kg

DRUGS (2)
  1. NICOTINE [Suspect]
     Indication: SMOKING CESSATION THERAPY
     Route: 003
     Dates: start: 20110401, end: 20110510
  2. NICOTINE [Suspect]
     Route: 003

REACTIONS (2)
  - DERMATITIS CONTACT [None]
  - PRURITUS GENERALISED [None]
